FAERS Safety Report 9680119 (Version 3)
Quarter: 2016Q1

REPORT INFORMATION
  Report Type: Spontaneous
  Country: FR (occurrence: FR)
  Receive Date: 20131111
  Receipt Date: 20160328
  Transmission Date: 20160526
  Serious: Yes (Other)
  Sender: FDA-Public Use
  Company Number: FR-JNJFOC-20131019875

PATIENT
  Age: 55 Year
  Sex: Female

DRUGS (13)
  1. ACTIFED JOUR ET NUIT [Suspect]
     Active Substance: ACETAMINOPHEN\DIPHENHYDRAMINE HYDROCHLORIDE\PSEUDOEPHEDRINE HYDROCHLORIDE
     Indication: PRODUCT USED FOR UNKNOWN INDICATION
     Route: 065
  2. ACTIFED RHUME [Suspect]
     Active Substance: ACETAMINOPHEN\PSEUDOEPHEDRINE HYDROCHLORIDE\TRIPROLIDINE HYDROCHLORIDE
     Indication: PRODUCT USED FOR UNKNOWN INDICATION
     Route: 048
  3. TENUATE DOSPAN [Suspect]
     Active Substance: DIETHYLPROPION HYDROCHLORIDE
     Indication: WEIGHT LOSS DIET
     Route: 048
  4. RHINAMIDE [Suspect]
     Active Substance: BENZOIC ACID\EPHEDRINE HYDROCHLORIDE
     Indication: PRODUCT USED FOR UNKNOWN INDICATION
     Route: 045
  5. ACTIFED [Suspect]
     Active Substance: PSEUDOEPHEDRINE HYDROCHLORIDE\TRIPROLIDINE HYDROCHLORIDE
     Route: 065
  6. PREFAMONE [Suspect]
     Active Substance: DIETHYLPROPION HYDROCHLORIDE
     Indication: WEIGHT LOSS DIET
     Route: 048
  7. DININTEL [Suspect]
     Active Substance: CLOBENZOREX HYDROCHLORIDE
     Indication: WEIGHT LOSS DIET
     Route: 048
  8. ACTIFED [Suspect]
     Active Substance: PSEUDOEPHEDRINE HYDROCHLORIDE\TRIPROLIDINE HYDROCHLORIDE
     Indication: PRODUCT USED FOR UNKNOWN INDICATION
     Route: 065
  9. ACTIFED JOUR ET NUIT [Suspect]
     Active Substance: ACETAMINOPHEN\DIPHENHYDRAMINE HYDROCHLORIDE\PSEUDOEPHEDRINE HYDROCHLORIDE
     Route: 065
  10. PONDERAL [Suspect]
     Active Substance: FENFLURAMINE HYDROCHLORIDE
     Indication: WEIGHT LOSS DIET
     Route: 048
  11. FENPROPOREX [Suspect]
     Active Substance: FENPROPOREX DIPHENYLACETATE
     Indication: WEIGHT LOSS DIET
     Route: 048
  12. ACTIFED RHUME [Suspect]
     Active Substance: ACETAMINOPHEN\PSEUDOEPHEDRINE HYDROCHLORIDE\TRIPROLIDINE HYDROCHLORIDE
     Route: 048
  13. MODERATAN [Suspect]
     Active Substance: DIETHYLPROPION HYDROCHLORIDE
     Indication: WEIGHT LOSS DIET
     Route: 048

REACTIONS (1)
  - Pulmonary arterial hypertension [Not Recovered/Not Resolved]

NARRATIVE: CASE EVENT DATE: 19950628
